FAERS Safety Report 6121936-X (Version None)
Quarter: 2009Q1

REPORT INFORMATION
  Report Type: 
  Country: None (occurrence: None)
  Receive Date: 20090317
  Receipt Date: 20090310
  Transmission Date: 20090719
  Serious: Yes (Hospitalization)
  Sender: FDA-Public Use
  Company Number: JP-MERCK-0903USA02164

PATIENT
  Age: 60 Year
  Sex: Female

DRUGS (3)
  1. PEPCID RPD [Suspect]
     Route: 048
     Dates: start: 20090201
  2. FERROMIA [Concomitant]
     Route: 065
  3. ARIXTRA [Concomitant]
     Route: 065

REACTIONS (1)
  - DISSEMINATED INTRAVASCULAR COAGULATION [None]
